FAERS Safety Report 8464491-1 (Version None)
Quarter: 2012Q2

REPORT INFORMATION
  Report Type: 
  Country: None (occurrence: None)
  Receive Date: 20120626
  Receipt Date: 20120615
  Transmission Date: 20120825
  Serious: Yes (Hospitalization)
  Sender: FDA-Public Use
  Company Number: US-BRISTOL-MYERS SQUIBB COMPANY-16689614

PATIENT

DRUGS (1)
  1. YERVOY [Suspect]
     Dosage: NO OF DOSE:1

REACTIONS (1)
  - NEUTROPENIA [None]
